FAERS Safety Report 6801120-4 (Version None)
Quarter: 2010Q2

REPORT INFORMATION
  Report Type: 
  Country: None (occurrence: None)
  Receive Date: 20100629
  Receipt Date: 20100625
  Transmission Date: 20101027
  Serious: Yes (Death)
  Sender: FDA-Public Use
  Company Number: KR-EISAI INC.-E2020-05620-SPO-KR

PATIENT
  Age: 62 Year
  Sex: Male
  Weight: 62 kg

DRUGS (5)
  1. ARICEPT [Suspect]
     Indication: DRUG USE FOR UNKNOWN INDICATION
     Route: 048
     Dates: start: 20090811
  2. ASPIRIN [Concomitant]
     Indication: CEREBRAL INFARCTION
     Route: 048
     Dates: start: 20090702, end: 20090930
  3. REBAMIPIDE [Concomitant]
     Route: 048
     Dates: start: 20090702, end: 20090930
  4. BICALUTAMIDE [Concomitant]
     Route: 048
     Dates: start: 20080515, end: 20090930
  5. SOLIFENACIN SUCCINATE [Concomitant]
     Indication: BLADDER DISORDER
     Route: 048
     Dates: start: 20090721, end: 20090819

REACTIONS (1)
  - CEREBRAL HAEMORRHAGE [None]
